FAERS Safety Report 7482438-1 (Version None)
Quarter: 2011Q2

REPORT INFORMATION
  Report Type: 
  Country: None (occurrence: None)
  Receive Date: 20110516
  Receipt Date: 20110510
  Transmission Date: 20111010
  Serious: No
  Sender: FDA-Public Use
  Company Number: FR-PFIZER INC-2011066395

PATIENT
  Age: 78 Year
  Sex: Male

DRUGS (2)
  1. ATORVASTATIN CALCIUM [Suspect]
     Dosage: 40 MG
  2. ISOPTIN SR [Interacting]
     Dosage: 240 MG
     Dates: start: 20110201

REACTIONS (1)
  - NO ADVERSE EVENT [None]
